FAERS Safety Report 6142509-9 (Version None)
Quarter: 2009Q2

REPORT INFORMATION
  Report Type: 
  Country: None (occurrence: None)
  Receive Date: 20090403
  Receipt Date: 20090324
  Transmission Date: 20091009
  Serious: Yes (Other)
  Sender: FDA-Public Use
  Company Number: GB-PFIZER INC-2008071906

PATIENT

DRUGS (2)
  1. AMLODIPINE [Suspect]
     Route: 050
  2. BENDROFLUMETHIAZIDE [Suspect]
     Route: 050

REACTIONS (1)
  - ABORTION SPONTANEOUS [None]
